FAERS Safety Report 4657733-1 (Version None)
Quarter: 2005Q2

REPORT INFORMATION
  Report Type: 
  Country: None (occurrence: None)
  Receive Date: 20050510
  Receipt Date: 20050503
  Transmission Date: 20051028
  Serious: Yes (Hospitalization)
  Sender: FDA-Public Use
  Company Number: US-ABBOTT-05P-163-0299425-00

PATIENT
  Sex: Male
  Weight: 121 kg

DRUGS (5)
  1. HUMIRA [Suspect]
     Indication: POLYARTHRITIS
     Route: 058
     Dates: start: 20030101, end: 20040101
  2. HUMIRA [Suspect]
     Route: 058
     Dates: start: 20040101, end: 20050404
  3. SULTOPRIDE [Concomitant]
     Indication: ATRIAL FIBRILLATION
     Route: 048
     Dates: start: 20010101
  4. FLECKNIDE [Concomitant]
     Indication: ATRIAL FIBRILLATION
     Route: 048
     Dates: start: 20010101
  5. HYDROCHLOROTHIAZIDE [Concomitant]
     Indication: BLOOD PRESSURE
     Route: 048
     Dates: start: 19950101

REACTIONS (1)
  - INTERVERTEBRAL DISC PROTRUSION [None]
